FAERS Safety Report 5961101-X (Version None)
Quarter: 2008Q4

REPORT INFORMATION
  Report Type: 
  Country: None (occurrence: None)
  Receive Date: 20081119
  Receipt Date: 20081103
  Transmission Date: 20090506
  Serious: No
  Sender: FDA-Public Use
  Company Number: E-08-238

PATIENT
  Sex: Male

DRUGS (3)
  1. METHYLPREDNISOLONE [Suspect]
     Indication: OSTEOARTHRITIS
     Dosage: 24 MG PO, TAPERED
     Route: 048
     Dates: start: 20080829, end: 20080831
  2. LOTREL [Concomitant]
  3. ATENOLOL [Concomitant]

REACTIONS (3)
  - ABDOMINAL PAIN [None]
  - BURSITIS INFECTIVE [None]
  - CONTRAST MEDIA REACTION [None]
